FAERS Safety Report 4915985-4 (Version None)
Quarter: 2006Q1

REPORT INFORMATION
  Report Type: 
  Country: None (occurrence: None)
  Receive Date: 20060214
  Receipt Date: 20060125
  Transmission Date: 20060701
  Serious: Yes (Death)
  Sender: FDA-Public Use
  Company Number: USA040465379

PATIENT
  Age: 78 Year
  Sex: Male

DRUGS (7)
  1. FORTEO [Suspect]
     Indication: OSTEOPOROSIS
     Dates: start: 20030501, end: 20050101
  2. COUMADIN [Concomitant]
  3. THYROXINE (THYROXINE) [Concomitant]
  4. TESTOSTERONE [Concomitant]
  5. TRAMADOL (TRAMADOL) [Concomitant]
  6. XOPENEX [Concomitant]
  7. FORTEO [Concomitant]

REACTIONS (8)
  - ARRHYTHMIA [None]
  - ARTERIOSCLEROSIS CORONARY ARTERY [None]
  - BACK PAIN [None]
  - CHRONIC OBSTRUCTIVE PULMONARY DISEASE [None]
  - COLITIS [None]
  - MEDICAL DEVICE COMPLICATION [None]
  - PHARMACEUTICAL PRODUCT COMPLAINT [None]
  - SUDDEN DEATH [None]
